FAERS Safety Report 7954148 (Version 3)
Quarter: 2013Q2

REPORT INFORMATION
  Report Type: Spontaneous
  Country: US (occurrence: US)
  Receive Date: 20110520
  Receipt Date: 20130524
  Transmission Date: 20140414
  Serious: Yes (Death, Hospitalization, Congenital Anomaly, Other)
  Sender: FDA-Public Use
  Company Number: US-PFIZER INC-2011105696

PATIENT
  Sex: Female
  Weight: 2.8 kg

DRUGS (3)
  1. EFFEXOR XR [Suspect]
     Dosage: 150 MG, UNK
     Route: 064
     Dates: start: 2003
  2. EFFEXOR [Suspect]
     Dosage: UNK
     Route: 064
  3. VENLAFAXINE HCL [Suspect]
     Dosage: UNK
     Route: 064

REACTIONS (11)
  - Foetal exposure during pregnancy [Fatal]
  - Coarctation of the aorta [Fatal]
  - Hypoplastic left heart syndrome [Fatal]
  - Patent ductus arteriosus [Fatal]
  - Atrioventricular septal defect [Fatal]
  - Bicuspid aortic valve [Fatal]
  - Congenital aortic stenosis [Fatal]
  - Respiratory distress [Fatal]
  - Pulmonary oedema neonatal [Fatal]
  - Cardiomegaly [Unknown]
  - Atelectasis neonatal [Unknown]
